FAERS Safety Report 9085023 (Version 1)
Quarter: 2013Q1

REPORT INFORMATION
  Report Type: Report from Study
  Country: US (occurrence: US)
  Receive Date: 20130131
  Receipt Date: 20130131
  Transmission Date: 20140127
  Serious: No
  Sender: FDA-Public Use
  Company Number: US-ABBOTT-12P-163-0986392-00

PATIENT
  Age: 46 Year
  Sex: Female

DRUGS (11)
  1. HUMIRA [Suspect]
     Indication: PSORIATIC ARTHROPATHY
     Dates: start: 20120909
  2. PREDNISONE [Concomitant]
     Indication: PRODUCT USED FOR UNKNOWN INDICATION
     Dosage: 15MG DAILY
  3. HYDROCODONE [Concomitant]
     Indication: ARTHRALGIA
     Dosage: TWICE DAILY AS NEEDED
  4. LORAZEPAM [Concomitant]
     Indication: ANXIETY
     Dosage: TWICE DAILY AS NEEDED
  5. OMEPRAZOLE [Concomitant]
     Indication: GASTRIC DISORDER
     Dosage: 1-2 TABLETS DAILY
  6. BOSWELLIA [Concomitant]
     Indication: INFLAMMATION
     Dosage: 450MG DAILY
  7. TURMERIC [Concomitant]
     Indication: INFLAMMATION
     Dosage: 450MG DAILY
  8. GINGER ROOT [Concomitant]
     Indication: PHYTOTHERAPY
     Dosage: 550MG DAILY
  9. VITAMIN B12 [Concomitant]
     Indication: PRODUCT USED FOR UNKNOWN INDICATION
  10. EVENING PRIMROSE [Concomitant]
     Indication: PRODUCT USED FOR UNKNOWN INDICATION
  11. CRILL OIL [Concomitant]
     Indication: PRODUCT USED FOR UNKNOWN INDICATION
     Dosage: 300MG DAILY

REACTIONS (1)
  - Pain [Recovered/Resolved]
